FAERS Safety Report 7220843-9 (Version None)
Quarter: 2011Q1

REPORT INFORMATION
  Report Type: 
  Country: None (occurrence: None)
  Receive Date: 20110112
  Receipt Date: 20080318
  Transmission Date: 20110831
  Serious: Yes (Death, Hospitalization, Other)
  Sender: FDA-Public Use
  Company Number: ES-CELGENEUS-144-C5013-07090855

PATIENT
  Sex: Male

DRUGS (4)
  1. CC-5013 [Suspect]
     Route: 048
     Dates: start: 20070608, end: 20070818
  2. CC-5013 [Suspect]
     Route: 048
     Dates: start: 20070525, end: 20070601
  3. VERAPAMIL [Concomitant]
     Route: 065
  4. TRANDOLAPRIL [Concomitant]
     Route: 065

REACTIONS (7)
  - THROMBOCYTOPENIA [None]
  - SKIN ULCER [None]
  - MYELODYSPLASTIC SYNDROME TRANSFORMATION [None]
  - CELLULITIS [None]
  - ACUTE MYELOID LEUKAEMIA [None]
  - ERYTHEMA [None]
  - PYREXIA [None]
